FAERS Safety Report 5735066-X (Version None)
Quarter: 2008Q2

REPORT INFORMATION
  Report Type: 
  Country: None (occurrence: None)
  Receive Date: 20080512
  Receipt Date: 20080429
  Transmission Date: 20081010
  Serious: Yes (Other)
  Sender: FDA-Public Use
  Company Number: US-BAYER-200810316BCC

PATIENT
  Age: 37 Year
  Sex: Female
  Weight: 66 kg

DRUGS (1)
  1. ALEVE [Suspect]
     Indication: BACK PAIN
     Dosage: TOTAL DAILY DOSE: 440 MG  UNIT DOSE: 220 MG
     Route: 048
     Dates: start: 20080118, end: 20080118

REACTIONS (4)
  - CHOKING SENSATION [None]
  - HYPERSENSITIVITY [None]
  - THROAT TIGHTNESS [None]
  - URTICARIA [None]
